FAERS Safety Report 16711797 (Version 2)
Quarter: 2019Q3

REPORT INFORMATION
  Report Type: Report from Study
  Country: US (occurrence: US)
  Receive Date: 20190816
  Receipt Date: 20190917
  Transmission Date: 20191004
  Serious: No
  Sender: FDA-Public Use
  Company Number: US-SA-2019SA225423

PATIENT
  Age: 66 Year
  Sex: Male

DRUGS (1)
  1. SARILUMAB [Suspect]
     Active Substance: SARILUMAB
     Indication: POLYMYALGIA RHEUMATICA
     Dosage: 200 MG, 1X
     Dates: start: 201907, end: 20190708

REACTIONS (4)
  - Bronchitis [Recovered/Resolved]
  - Product use in unapproved indication [Unknown]
  - Asthenia [Recovering/Resolving]
  - Secretion discharge [Not Recovered/Not Resolved]

NARRATIVE: CASE EVENT DATE: 2019
